FAERS Safety Report 4646869-7 (Version None)
Quarter: 2005Q2

REPORT INFORMATION
  Report Type: 
  Country: None (occurrence: None)
  Receive Date: 20050331
  Receipt Date: 20050114
  Transmission Date: 20051028
  Serious: No
  Sender: FDA-Public Use
  Company Number: 05P-163-0286769-00

PATIENT
  Age: 65 Year
  Sex: Male
  Weight: 83.9154 kg

DRUGS (5)
  1. HUMIRA [Suspect]
     Indication: RHEUMATOID ARTHRITIS
     Dosage: 40 MG, 1 IN 2 WK, SUBCUTANEOUS
     Route: 058
     Dates: start: 20041217
  2. METHOTREXATE [Concomitant]
  3. FOLIC ACID [Concomitant]
  4. BUCINDOLOL HYDROCHLORIDE [Concomitant]
  5. FLOMAX [Concomitant]

REACTIONS (2)
  - ARTHRALGIA [None]
  - BURSITIS [None]
